FAERS Safety Report 10383632 (Version 2)
Quarter: 2014Q3

REPORT INFORMATION
  Report Type: Report from Study
  Country: AR (occurrence: AR)
  Receive Date: 20140814
  Receipt Date: 20140814
  Transmission Date: 20150326
  Serious: Yes (Hospitalization, Disabling, Other)
  Sender: FDA-Public Use
  Company Number: AR-BRISTOL-MYERS SQUIBB COMPANY-12701926

PATIENT
  Age: 41 Year
  Sex: Male

DRUGS (5)
  1. ORENCIA [Suspect]
     Active Substance: ABATACEPT
     Indication: RHEUMATOID ARTHRITIS
     Route: 042
     Dates: start: 20040413, end: 20040823
  2. METHOTREXATE (METHOTREXATE SODIUM) [Suspect]
     Active Substance: METHOTREXATE SODIUM
     Indication: RHEUMATOID ARTHRITIS
     Route: 048
     Dates: start: 20020722
  3. FOLIC ACID. [Concomitant]
     Active Substance: FOLIC ACID
     Dates: start: 20020722
  4. DICLOFENAC [Concomitant]
     Active Substance: DICLOFENAC
     Dates: start: 20040727
  5. PREDNISONE. [Concomitant]
     Active Substance: PREDNISONE
     Dates: start: 20001207

REACTIONS (2)
  - Abscess limb [Recovered/Resolved with Sequelae]
  - Device related infection [Unknown]

NARRATIVE: CASE EVENT DATE: 20040907
